FAERS Safety Report 13048801 (Version 1)
Quarter: 2016Q4

REPORT INFORMATION
  Report Type: Spontaneous
  Country: JP (occurrence: JP)
  Receive Date: 20161221
  Receipt Date: 20161221
  Transmission Date: 20170207
  Serious: Yes (Death, Hospitalization, Other)
  Sender: FDA-Public Use
  Company Number: JP-ABBVIE-16P-087-1776197-00

PATIENT
  Age: 85 Year
  Sex: Male

DRUGS (2)
  1. LEUPLIN SR [Suspect]
     Active Substance: LEUPROLIDE ACETATE
     Indication: PROSTATE CANCER
     Dosage: 11.25MG, Q#MONTHS
     Route: 058
     Dates: start: 200101, end: 20160902
  2. ZYTIGA [Concomitant]
     Active Substance: ABIRATERONE ACETATE
     Indication: PRODUCT USED FOR UNKNOWN INDICATION
     Dosage: UNK
     Route: 048
     Dates: start: 20161003

REACTIONS (2)
  - Fall [Recovered/Resolved]
  - Prostate cancer recurrent [Fatal]

NARRATIVE: CASE EVENT DATE: 201609
